FAERS Safety Report 5265469-1 (Version None)
Quarter: 2007Q1

REPORT INFORMATION
  Report Type: 
  Country: None (occurrence: None)
  Receive Date: 20070314
  Receipt Date: 20070221
  Transmission Date: 20070707
  Serious: Yes (Death, Hospitalization, Other)
  Sender: FDA-Public Use
  Company Number: US-PFIZER INC-2007014843

PATIENT
  Sex: Female
  Weight: 89.4 kg

DRUGS (1)
  1. CELEBREX [Suspect]
     Indication: FIBROMYALGIA
     Dates: start: 20010225, end: 20021101

REACTIONS (4)
  - AORTIC STENOSIS [None]
  - CARDIAC ARREST [None]
  - CARDIAC FAILURE CONGESTIVE [None]
  - MYOCARDIAL INFARCTION [None]
